FAERS Safety Report 12140732 (Version 3)
Quarter: 2016Q1

REPORT INFORMATION
  Report Type: Spontaneous
  Country: GB (occurrence: GB)
  Receive Date: 20160303
  Receipt Date: 20160323
  Transmission Date: 20160526
  Serious: Yes (Other)
  Sender: FDA-Public Use
  Company Number: GB-TEVA-640423ISR

PATIENT
  Age: 68 Year
  Sex: Male

DRUGS (5)
  1. AMLODIPINE [Suspect]
     Active Substance: AMLODIPINE BESYLATE
     Route: 048
  2. CITALOPRAM [Suspect]
     Active Substance: CITALOPRAM HYDROBROMIDE
  3. VALPROIC ACID. [Suspect]
     Active Substance: VALPROIC ACID
  4. CLOZAPINE. [Suspect]
     Active Substance: CLOZAPINE
  5. METFORMIN [Suspect]
     Active Substance: METFORMIN HYDROCHLORIDE

REACTIONS (3)
  - Overdose [Recovering/Resolving]
  - Metabolic acidosis [Recovering/Resolving]
  - Hypotension [Recovering/Resolving]
